FAERS Safety Report 9300680 (Version 1)
Quarter: 2013Q2

REPORT INFORMATION
  Report Type: Spontaneous
  Country: US (occurrence: None)
  Receive Date: 20130520
  Receipt Date: 20130520
  Transmission Date: 20140414
  Serious: Yes (Hospitalization)
  Sender: FDA-Public Use
  Company Number: None

PATIENT
  Age: 42 Year
  Sex: Female
  Weight: 159.1 kg

DRUGS (1)
  1. LINEZOLID [Suspect]
     Indication: CELLULITIS STAPHYLOCOCCAL
     Route: 048
     Dates: start: 20130403, end: 20130430

REACTIONS (5)
  - Asthenia [None]
  - Rash maculo-papular [None]
  - Nausea [None]
  - Vomiting [None]
  - Movement disorder [None]
